FAERS Safety Report 4449656-8 (Version None)
Quarter: 2004Q3

REPORT INFORMATION
  Report Type: 
  Country: None (occurrence: None)
  Receive Date: 20040913
  Receipt Date: 20040826
  Transmission Date: 20050211
  Serious: Yes (Death, Hospitalization)
  Sender: FDA-Public Use
  Company Number: 203809

PATIENT
  Age: 74 Year
  Sex: Male

DRUGS (2)
  1. AVONEX [Suspect]
     Indication: MULTIPLE SCLEROSIS
     Dosage: 30 MCG QW IM
     Route: 030
     Dates: start: 20000825
  2. AVONEX [Suspect]
     Indication: MULTIPLE SCLEROSIS
     Dosage: 30 MCG QW IM
     Route: 030
     Dates: start: 20030813, end: 20040823

REACTIONS (6)
  - ASTHENIA [None]
  - CARDIO-RESPIRATORY ARREST [None]
  - DEHYDRATION [None]
  - FALL [None]
  - INFLUENZA LIKE ILLNESS [None]
  - URINARY TRACT INFECTION [None]
